FAERS Safety Report 15642307 (Version 1)
Quarter: 2018Q4

REPORT INFORMATION
  Report Type: Spontaneous
  Country: KR (occurrence: KR)
  Receive Date: 20181121
  Receipt Date: 20181121
  Transmission Date: 20190205
  Serious: Yes (Hospitalization)
  Sender: FDA-Public Use
  Company Number: KR-009507513-1811KOR006432

PATIENT
  Sex: Male

DRUGS (48)
  1. MUTERAN [Concomitant]
     Active Substance: ACETYLCYSTEINE
     Dosage: UNK
     Dates: start: 20181029, end: 20181101
  2. NORVASC [Concomitant]
     Active Substance: AMLODIPINE BESYLATE
     Dosage: UNK
     Dates: start: 20181102, end: 20181104
  3. SODIUM BICARBONATE. [Concomitant]
     Active Substance: SODIUM BICARBONATE
     Dosage: UNK
     Dates: start: 20181028, end: 20181101
  4. LOPAINE [Concomitant]
     Dosage: UNK
     Dates: start: 20181106
  5. MUTERAN [Concomitant]
     Active Substance: ACETYLCYSTEINE
     Dosage: UNK
     Dates: start: 20181028
  6. URSA TABLETS [Concomitant]
     Dosage: UNK
     Dates: start: 20181102, end: 20181107
  7. SODIUM CHLORIDE. [Concomitant]
     Active Substance: SODIUM CHLORIDE
     Dosage: UNK
     Dates: start: 20181031, end: 20181102
  8. SODIUM CHLORIDE. [Concomitant]
     Active Substance: SODIUM CHLORIDE
     Dosage: UNK
     Dates: start: 20181028, end: 20181030
  9. FRAGMIN [Concomitant]
     Active Substance: DALTEPARIN SODIUM
     Dosage: UNK
     Dates: start: 20181031
  10. KEYTRUDA [Suspect]
     Active Substance: PEMBROLIZUMAB
     Indication: BILE DUCT CANCER
     Dosage: 200 MG, QUANTITY:2 DAY:1
     Dates: start: 20181102
  11. MUTERAN [Concomitant]
     Active Substance: ACETYLCYSTEINE
     Dosage: UNK
     Dates: start: 20181102, end: 20181107
  12. TARGIN [Concomitant]
     Active Substance: NALOXONE HYDROCHLORIDE\OXYCODONE HYDROCHLORIDE
     Dosage: UNK
     Dates: start: 20181101
  13. URSA TABLETS [Concomitant]
     Dosage: UNK
     Dates: start: 20181029, end: 20181031
  14. ALBUMIN HUMAN [Concomitant]
     Active Substance: ALBUMIN HUMAN
     Dosage: UNK
     Dates: start: 20181104
  15. CRAVIT [Concomitant]
     Active Substance: LEVOFLOXACIN
     Dosage: UNK
     Dates: start: 20181101, end: 20181105
  16. NORVASC [Concomitant]
     Active Substance: AMLODIPINE BESYLATE
     Dosage: UNK
     Dates: start: 20181030, end: 20181031
  17. IRCODON [Concomitant]
     Active Substance: OXYCODONE HYDROCHLORIDE
     Dosage: UNK
     Dates: start: 20181107
  18. DEXTROSE. [Concomitant]
     Active Substance: DEXTROSE
     Dosage: UNK
     Dates: start: 20181028, end: 20181106
  19. SODIUM CHLORIDE. [Concomitant]
     Active Substance: SODIUM CHLORIDE
     Dosage: UNK
     Dates: start: 20181028
  20. BUSCOPAN [Concomitant]
     Active Substance: BUTYLSCOPOLAMINE BROMIDE
     Dosage: UNK
     Dates: start: 20181028, end: 20181101
  21. BUSCOPAN [Concomitant]
     Active Substance: BUTYLSCOPOLAMINE BROMIDE
     Dosage: UNK
     Dates: start: 20181028
  22. TARGIN [Concomitant]
     Active Substance: NALOXONE HYDROCHLORIDE\OXYCODONE HYDROCHLORIDE
     Dosage: UNK
     Dates: start: 20181028, end: 20181031
  23. TASNA [Concomitant]
     Dosage: UNK
     Dates: start: 20181028, end: 20181102
  24. SODIUM CHLORIDE. [Concomitant]
     Active Substance: SODIUM CHLORIDE
     Dosage: UNK
     Dates: start: 20181102
  25. TAZOPERAN [Concomitant]
     Dosage: UNK
     Dates: start: 20181028
  26. FRAGMIN [Concomitant]
     Active Substance: DALTEPARIN SODIUM
     Dosage: UNK
     Dates: start: 20181031, end: 20181107
  27. FRAGMIN [Concomitant]
     Active Substance: DALTEPARIN SODIUM
     Dosage: UNK
     Dates: start: 20181101, end: 20181107
  28. IRCODON [Concomitant]
     Active Substance: OXYCODONE HYDROCHLORIDE
     Dosage: UNK
     Dates: start: 20181029
  29. PHAZYME (SIMETHICONE) [Concomitant]
     Dosage: UNK
     Dates: start: 20181028
  30. URSA TABLETS [Concomitant]
     Dosage: UNK
     Dates: start: 20181101
  31. SODIUM BICARBONATE. [Concomitant]
     Active Substance: SODIUM BICARBONATE
     Dosage: UNK
     Dates: start: 20181028
  32. TAZOPERAN [Concomitant]
     Dosage: UNK
     Dates: start: 20181101, end: 20181106
  33. TAZOPERAN [Concomitant]
     Dosage: UNK
     Dates: start: 20181029, end: 20181031
  34. TAZOPERAN [Concomitant]
     Dosage: UNK
     Dates: start: 20181028
  35. MUTERAN [Concomitant]
     Active Substance: ACETYLCYSTEINE
     Dosage: UNK
     Dates: start: 20181028
  36. PHAZYME (SIMETHICONE) [Concomitant]
     Dosage: UNK
     Dates: start: 20181028, end: 20181101
  37. PHAZYME (SIMETHICONE) [Concomitant]
     Dosage: UNK
     Dates: start: 20181029, end: 20181107
  38. TARGIN [Concomitant]
     Active Substance: NALOXONE HYDROCHLORIDE\OXYCODONE HYDROCHLORIDE
     Dosage: UNK
     Dates: start: 20181102, end: 20181107
  39. TASNA [Concomitant]
     Dosage: UNK
     Dates: start: 20181028
  40. URSA TABLETS [Concomitant]
     Dosage: UNK
     Dates: start: 20181028
  41. CEFOTAXIME SODIUM [Concomitant]
     Active Substance: CEFOTAXIME SODIUM
     Dosage: UNK
     Dates: start: 20181028
  42. CRAVIT [Concomitant]
     Active Substance: LEVOFLOXACIN
     Dosage: UNK
     Dates: start: 20181028, end: 20181030
  43. DENOGAN [Concomitant]
     Active Substance: PROPACETAMOL HYDROCHLORIDE
     Dosage: UNK
     Dates: start: 20181030
  44. BUSCOPAN [Concomitant]
     Active Substance: BUTYLSCOPOLAMINE BROMIDE
     Dosage: UNK
     Dates: start: 20181029, end: 20181107
  45. MUTERAN [Concomitant]
     Active Substance: ACETYLCYSTEINE
     Dosage: UNK
     Dates: start: 20181101
  46. TASNA [Concomitant]
     Dosage: UNK
     Dates: start: 20181029, end: 20181031
  47. URSA TABLETS [Concomitant]
     Dosage: UNK
     Dates: start: 20181028
  48. SODIUM CHLORIDE. [Concomitant]
     Active Substance: SODIUM CHLORIDE
     Dosage: UNK
     Dates: start: 20181028

REACTIONS (2)
  - Oedema peripheral [Unknown]
  - Product use in unapproved indication [Unknown]

NARRATIVE: CASE EVENT DATE: 2018
